FAERS Safety Report 9448642 (Version 1)
Quarter: 2013Q3

REPORT INFORMATION
  Report Type: Spontaneous
  Country: US (occurrence: US)
  Receive Date: 20130808
  Receipt Date: 20130808
  Transmission Date: 20140515
  Serious: Yes (Other)
  Sender: FDA-Public Use
  Company Number: US-GLAXOSMITHKLINE-A1036544A

PATIENT
  Age: 44 Year
  Sex: Female

DRUGS (1)
  1. WALGREENS LOZENGE CHERRY 4 MG [Suspect]
     Indication: SMOKING CESSATION THERAPY
     Route: 002
     Dates: start: 20130802, end: 20130802

REACTIONS (8)
  - Hypersensitivity [Recovered/Resolved]
  - Oesophageal discomfort [Recovered/Resolved]
  - Pharyngeal oedema [Recovered/Resolved]
  - Throat irritation [Recovered/Resolved]
  - Throat irritation [Recovered/Resolved]
  - Oropharyngeal discomfort [Recovered/Resolved]
  - Tracheal stenosis [Recovered/Resolved]
  - Oropharyngeal pain [Recovered/Resolved]
